FAERS Safety Report 23935850 (Version 1)
Quarter: 2024Q2

REPORT INFORMATION
  Report Type: Spontaneous
  Country: IT (occurrence: IT)
  Receive Date: 20240604
  Receipt Date: 20240604
  Transmission Date: 20240716
  Serious: Yes (Hospitalization, Other)
  Sender: FDA-Public Use
  Company Number: None

PATIENT
  Age: 7 Year
  Sex: Female
  Weight: 21 kg

DRUGS (5)
  1. CEFTRIAXONE [Suspect]
     Active Substance: CEFTRIAXONE\CEFTRIAXONE SODIUM
     Indication: Product used for unknown indication
     Dosage: UNK
     Route: 065
     Dates: start: 20240403, end: 20240405
  2. CLINDAMYCIN PHOSPHATE [Suspect]
     Active Substance: CLINDAMYCIN PHOSPHATE
     Indication: Lymphadenitis
     Dosage: 210 MILLIGRAM, Q8H
     Route: 042
     Dates: start: 20240405, end: 20240410
  3. CLENIL [BECLOMETASONE DIPROPIONATE] [Concomitant]
     Indication: Product used for unknown indication
     Dosage: UNK
     Route: 065
  4. MEROPENEM [Concomitant]
     Active Substance: MEROPENEM
     Indication: Lymphadenitis
     Dosage: 700 MILLIGRAM, Q8H
     Route: 042
     Dates: start: 20240405, end: 20240410
  5. MOMETASONE FUROATO SANDOZ [Concomitant]
     Indication: Rhinitis
     Dosage: 1 SPRAY PER NOSTRIL, QD
     Route: 055
     Dates: start: 20240405, end: 20240415

REACTIONS (2)
  - Rash [Recovered/Resolved]
  - Transaminases increased [Recovered/Resolved]

NARRATIVE: CASE EVENT DATE: 20240405
